FAERS Safety Report 20379757 (Version 1)
Quarter: 2022Q1

REPORT INFORMATION
  Report Type: Spontaneous
  Country: VN (occurrence: VN)
  Receive Date: 20220126
  Receipt Date: 20220126
  Transmission Date: 20220423
  Serious: Yes (Other)
  Sender: FDA-Public Use
  Company Number: VN-ELI_LILLY_AND_COMPANY-VN202201007210

PATIENT
  Age: 59 Year
  Sex: Male

DRUGS (6)
  1. PEMETREXED [Suspect]
     Active Substance: PEMETREXED
     Indication: Non-small cell lung cancer stage III
     Dosage: UNK UNK, CYCLICAL
     Route: 065
     Dates: start: 202006
  2. PEMETREXED [Suspect]
     Active Substance: PEMETREXED
     Indication: Adenocarcinoma
  3. PEMBROLIZUMAB [Suspect]
     Active Substance: PEMBROLIZUMAB
     Indication: Non-small cell lung cancer stage III
     Dosage: UNK UNK, CYCLICAL
     Route: 065
     Dates: start: 202006
  4. PEMBROLIZUMAB [Suspect]
     Active Substance: PEMBROLIZUMAB
     Indication: Adenocarcinoma
  5. PLATINUM [Concomitant]
     Active Substance: PLATINUM
     Indication: Non-small cell lung cancer stage III
     Dosage: UNK, UNKNOWN
     Route: 065
     Dates: start: 202006
  6. PLATINUM [Concomitant]
     Active Substance: PLATINUM
     Indication: Adenocarcinoma

REACTIONS (3)
  - Pulmonary fibrosis [Unknown]
  - Emphysema [Unknown]
  - Pneumonia [Unknown]

NARRATIVE: CASE EVENT DATE: 20201015
